FAERS Safety Report 6299900-X (Version None)
Quarter: 2009Q3

REPORT INFORMATION
  Report Type: 
  Country: None (occurrence: None)
  Receive Date: 20090806
  Receipt Date: 20090730
  Transmission Date: 20100115
  Serious: Yes (Life-Threatening, Other)
  Sender: FDA-Public Use
  Company Number: PHHY2009MX31921

PATIENT
  Sex: Female

DRUGS (2)
  1. DIOVAN [Suspect]
     Indication: HYPERTENSION
     Dosage: 1 TABLET (80 MG) QD
     Dates: start: 20081201
  2. DIOVAN [Suspect]
     Dosage: 0.5 TABLET (40 MG) DAILY

REACTIONS (3)
  - BLOOD PRESSURE INCREASED [None]
  - DEPRESSION [None]
  - TACHYCARDIA [None]
